FAERS Safety Report 4652886-3 (Version None)
Quarter: 2005Q2

REPORT INFORMATION
  Report Type: 
  Country: None (occurrence: None)
  Receive Date: 20050502
  Receipt Date: 20050418
  Transmission Date: 20051028
  Serious: Yes (Other)
  Sender: FDA-Public Use
  Company Number: 2005062417

PATIENT
  Sex: Female

DRUGS (1)
  1. BEXTRA [Suspect]
     Indication: JOINT DISLOCATION
     Dosage: (20 MG), ORAL
     Route: 048

REACTIONS (2)
  - BLISTER [None]
  - DRUG INEFFECTIVE [None]
